FAERS Safety Report 5027864-5 (Version None)
Quarter: 2006Q2

REPORT INFORMATION
  Report Type: 
  Country: None (occurrence: None)
  Receive Date: 20060616
  Receipt Date: 20060523
  Transmission Date: 20061013
  Serious: Yes (Other)
  Sender: FDA-Public Use
  Company Number: US-ROCHE-449312

PATIENT
  Age: 80 Year
  Sex: Female
  Weight: 56.7 kg

DRUGS (7)
  1. BONIVA [Suspect]
     Indication: OSTEOPOROSIS
     Route: 048
     Dates: start: 20050615
  2. ANTIHYPERTENSIVE DRUG NOS [Concomitant]
     Indication: HYPERTENSION
     Route: 048
  3. UNSPECIFIED DRUG [Concomitant]
     Indication: HYPOTHYROIDISM
     Dosage: UNKNOWN THYROID SUPPLEMENT
     Route: 048
  4. POTASSIUM [Concomitant]
     Route: 048
  5. IRON [Concomitant]
     Route: 048
  6. VITAMINS NOS [Concomitant]
     Route: 048
  7. UNKNOWN DIURETIC [Concomitant]
     Indication: HYPERTENSION
     Route: 048

REACTIONS (3)
  - DEPOSIT EYE [None]
  - MACULAR DEGENERATION [None]
  - VISUAL ACUITY REDUCED [None]
